FAERS Safety Report 7439397-7 (Version None)
Quarter: 2011Q2

REPORT INFORMATION
  Report Type: 
  Country: None (occurrence: None)
  Receive Date: 20110427
  Receipt Date: 20110415
  Transmission Date: 20111010
  Serious: Yes (Hospitalization)
  Sender: FDA-Public Use
  Company Number: JP-AMGEN-JPNCT2011021480

PATIENT
  Age: 62 Year
  Sex: Female
  Weight: 43 kg

DRUGS (12)
  1. PANITUMUMAB [Suspect]
     Dosage: 6 MG/KG, Q2WK
     Route: 041
     Dates: start: 20101222, end: 20110323
  2. DECADRON [Concomitant]
     Dosage: UNK
     Route: 042
  3. LASIX [Concomitant]
     Dosage: UNK
     Route: 048
  4. PANITUMUMAB [Suspect]
     Indication: COLORECTAL CANCER
     Dosage: 6 MG/KG, Q2WK
     Dates: start: 20101108, end: 20101124
  5. OXYCONTIN [Concomitant]
     Route: 048
  6. MINOMYCIN [Concomitant]
     Dosage: UNK
     Route: 048
  7. FLUOROURACIL [Concomitant]
     Indication: COLORECTAL CANCER
     Route: 040
     Dates: start: 20101108
  8. KYTRIL [Concomitant]
     Dosage: UNK
     Route: 042
  9. IRINOTECAN HYDROCHLORIDE [Concomitant]
     Indication: COLORECTAL CANCER
     Route: 041
     Dates: start: 20101108
  10. FLUOROURACIL [Concomitant]
     Route: 041
     Dates: start: 20101108
  11. CALCIUM LEVOFOLINATE [Concomitant]
     Indication: COLORECTAL CANCER
     Route: 041
     Dates: start: 20101108
  12. OXINORM [Concomitant]
     Dosage: UNK
     Route: 048

REACTIONS (6)
  - MALAISE [None]
  - PULMONARY ARTERY THROMBOSIS [None]
  - HYPOCALCAEMIA [None]
  - NEUTROPHIL COUNT DECREASED [None]
  - HYPOKALAEMIA [None]
  - HYPOMAGNESAEMIA [None]
